FAERS Safety Report 6058968-6 (Version None)
Quarter: 2009Q1

REPORT INFORMATION
  Report Type: 
  Country: None (occurrence: None)
  Receive Date: 20090130
  Receipt Date: 20090129
  Transmission Date: 20090719
  Serious: Yes (Hospitalization)
  Sender: FDA-Public Use
  Company Number: A0764414A

PATIENT
  Age: 43 Year
  Sex: Female
  Weight: 74 kg

DRUGS (2)
  1. ELTROMBOPAG [Suspect]
     Indication: IDIOPATHIC THROMBOCYTOPENIC PURPURA
     Route: 048
     Dates: start: 20080319
  2. VENOGLOBULIN [Concomitant]
     Route: 042
     Dates: start: 20090105, end: 20090108

REACTIONS (4)
  - CONTUSION [None]
  - EPISTAXIS [None]
  - MOUTH HAEMORRHAGE [None]
  - PETECHIAE [None]
